FAERS Safety Report 8504124-9 (Version None)
Quarter: 2012Q2

REPORT INFORMATION
  Report Type: 
  Country: None (occurrence: None)
  Receive Date: 20120405
  Receipt Date: 20110111
  Transmission Date: 20120825
  Serious: Yes (Hospitalization, Other)
  Sender: FDA-Public Use
  Company Number: PHHY2010US74362

PATIENT
  Age: 54 Year
  Sex: Female

DRUGS (4)
  1. RECLAST [Suspect]
     Indication: OSTEOPOROSIS
     Dosage: INTRAVENOUS
     Route: 042
     Dates: start: 20101028
  2. FISH OIL (FISH OIL) [Concomitant]
  3. CALCIUM CARBONATE [Concomitant]
  4. ASPIRIN [Concomitant]

REACTIONS (11)
  - NAUSEA [None]
  - PAIN IN EXTREMITY [None]
  - PYREXIA [None]
  - CHEST PAIN [None]
  - PAIN [None]
  - CHEST DISCOMFORT [None]
  - DYSPNOEA [None]
  - HEADACHE [None]
  - VOMITING [None]
  - ASTHENIA [None]
  - BACK PAIN [None]
